FAERS Safety Report 9851390 (Version 1)
Quarter: 2014Q1

REPORT INFORMATION
  Report Type: Spontaneous
  Country: US (occurrence: US)
  Receive Date: 20140129
  Receipt Date: 20140129
  Transmission Date: 20141002
  Serious: No
  Sender: FDA-Public Use
  Company Number: US-009507513-1401USA013149

PATIENT
  Age: 14 Year
  Sex: Female
  Weight: 52.15 kg

DRUGS (1)
  1. NUVARING [Suspect]
     Indication: ENDOMETRIOSIS
     Dosage: FREQUENCY: 3 WEEKS IN, NO BREAK
     Route: 067
     Dates: start: 201301

REACTIONS (1)
  - Inappropriate schedule of drug administration [Unknown]
